FAERS Safety Report 20781939 (Version 2)
Quarter: 2025Q3

REPORT INFORMATION
  Report Type: Spontaneous
  Country: US (occurrence: US)
  Receive Date: 20220504
  Receipt Date: 20250724
  Transmission Date: 20251021
  Serious: Yes (Death, Hospitalization, Other)
  Sender: AMGEN
  Company Number: US-AMGEN-USASP2022072396

PATIENT

DRUGS (1)
  1. FILGRASTIM [Suspect]
     Active Substance: FILGRASTIM
     Indication: Neutrophil count decreased
     Dosage: 5 MICROGRAM/KILOGRAM, QD (I.V. OR S.C. WAS ADMINISTERED DAILY FROM DAY +7)
     Route: 042

REACTIONS (48)
  - Haemorrhagic stroke [Fatal]
  - Posterior reversible encephalopathy syndrome [Recovered/Resolved]
  - Viral infection [Unknown]
  - Transplant failure [Unknown]
  - Cytomegalovirus infection [Unknown]
  - Aspergillus infection [Unknown]
  - Transplant rejection [Unknown]
  - Cerebral infarction [Unknown]
  - Subarachnoid haemorrhage [Recovered/Resolved]
  - Cytomegalovirus infection reactivation [Unknown]
  - Uraemic encephalopathy [Recovered/Resolved]
  - Alpha haemolytic streptococcal infection [Recovered/Resolved]
  - Acinetobacter infection [Recovered/Resolved]
  - Actinomycosis [Recovered/Resolved]
  - Mycobacterium fortuitum infection [Recovered/Resolved]
  - Stomatococcal infection [Recovered/Resolved]
  - Enterobacter infection [Recovered/Resolved]
  - Enterococcal infection [Recovered/Resolved]
  - Gastroenteritis salmonella [Recovered/Resolved]
  - Micrococcus infection [Recovered/Resolved]
  - Clostridium difficile infection [Recovered/Resolved]
  - Thrombocytopenia [Unknown]
  - Acute graft versus host disease [Unknown]
  - Seizure [Recovered/Resolved]
  - Pancreatitis [Recovered/Resolved]
  - Electrolyte imbalance [Unknown]
  - Pneumonia [Unknown]
  - Nervous system disorder [Unknown]
  - Renal impairment [Recovered/Resolved]
  - Hepatotoxicity [Unknown]
  - Septic shock [Unknown]
  - Obliterative bronchiolitis [Unknown]
  - Colitis [Unknown]
  - Ascites [Unknown]
  - Stevens-Johnson syndrome [Unknown]
  - Pericardial effusion [Unknown]
  - Tendonitis [Unknown]
  - Guillain-Barre syndrome [Unknown]
  - Haemolysis [Unknown]
  - Decreased appetite [Unknown]
  - Hypertension [Unknown]
  - Staphylococcal infection [Recovered/Resolved]
  - Escherichia infection [Recovered/Resolved]
  - Bacterial infection [Recovered/Resolved]
  - Klebsiella infection [Recovered/Resolved]
  - Skin infection [Recovered/Resolved]
  - Gastrointestinal infection [Recovered/Resolved]
  - Urinary tract infection [Recovered/Resolved]
